FAERS Safety Report 7289823-1 (Version None)
Quarter: 2011Q1

REPORT INFORMATION
  Report Type: 
  Country: None (occurrence: None)
  Receive Date: 20110214
  Receipt Date: 20110203
  Transmission Date: 20110831
  Serious: Yes (Other)
  Sender: FDA-Public Use
  Company Number: US-BIOGENIDEC-2006BI010577

PATIENT
  Age: 44 Year
  Sex: Female

DRUGS (3)
  1. AVONEX [Suspect]
     Route: 030
  2. AVONEX [Suspect]
     Route: 030
     Dates: end: 20100401
  3. AVONEX [Suspect]
     Indication: MULTIPLE SCLEROSIS
     Route: 030
     Dates: start: 20100401

REACTIONS (7)
  - GRAND MAL CONVULSION [None]
  - DIPLOPIA [None]
  - CONVERSION DISORDER [None]
  - AMNESIA [None]
  - ASTHENIA [None]
  - FATIGUE [None]
  - BALANCE DISORDER [None]
